FAERS Safety Report 7911096-4 (Version None)
Quarter: 2011Q4

REPORT INFORMATION
  Report Type: 
  Country: None (occurrence: None)
  Receive Date: 20111108
  Receipt Date: 20111024
  Transmission Date: 20120403
  Serious: Yes (Hospitalization)
  Sender: FDA-Public Use
  Company Number: DSA_47941_2011

PATIENT
  Age: 88 Year
  Sex: Female

DRUGS (3)
  1. VENLAFAXINE [Suspect]
     Indication: PRODUCT USED FOR UNKNOWN INDICATION
     Dosage: (37.5 MG QD), (75 MG QD)
     Dates: start: 20110129
  2. VENLAFAXINE [Suspect]
     Indication: PRODUCT USED FOR UNKNOWN INDICATION
     Dosage: (37.5 MG QD), (75 MG QD)
     Dates: start: 20100113
  3. CLINDAMYCIN [Suspect]
     Indication: PRODUCT USED FOR UNKNOWN INDICATION
     Dosage: (DF ORAL)
     Route: 048
     Dates: start: 20100103

REACTIONS (6)
  - CHILLS [None]
  - AGRANULOCYTOSIS [None]
  - TOXICITY TO VARIOUS AGENTS [None]
  - DEPRESSION [None]
  - PYREXIA [None]
  - STAPHYLOCOCCAL BACTERAEMIA [None]
